FAERS Safety Report 23404917 (Version 2)
Quarter: 2024Q1

REPORT INFORMATION
  Report Type: Spontaneous
  Country: US (occurrence: US)
  Receive Date: 20240116
  Receipt Date: 20240320
  Transmission Date: 20240410
  Serious: No
  Sender: FDA-Public Use
  Company Number: US-NOVEN PHARMACEUTICALS, INC.-2023-NOV-US001170

PATIENT
  Sex: Male

DRUGS (3)
  1. XELSTRYM [Suspect]
     Active Substance: DEXTROAMPHETAMINE
     Indication: Attention deficit hyperactivity disorder
     Dosage: 18 MG/9 HOURS, UNKNOWN
     Route: 062
     Dates: start: 2023
  2. XELSTRYM [Suspect]
     Active Substance: DEXTROAMPHETAMINE
     Dosage: 13.5 MG/9 HOURS, UNKNOWN
     Route: 062
     Dates: start: 2023, end: 2023
  3. XELSTRYM [Suspect]
     Active Substance: DEXTROAMPHETAMINE
     Dosage: 9 MG/9 HOURS, UNKNOWN
     Route: 062
     Dates: start: 202306, end: 2023

REACTIONS (1)
  - Therapeutic product ineffective [Not Recovered/Not Resolved]

NARRATIVE: CASE EVENT DATE: 20230101
